FAERS Safety Report 18902171 (Version 2)
Quarter: 2021Q1

REPORT INFORMATION
  Report Type: Report from Study
  Country: CA (occurrence: CA)
  Receive Date: 20210217
  Receipt Date: 20210312
  Transmission Date: 20210420
  Serious: Yes (Hospitalization)
  Sender: FDA-Public Use
  Company Number: CA-JNJFOC-20210220150

PATIENT
  Age: 43 Year
  Sex: Female

DRUGS (1)
  1. REMICADE [Suspect]
     Active Substance: INFLIXIMAB
     Indication: CROHN^S DISEASE
     Route: 042
     Dates: start: 20160112

REACTIONS (3)
  - Endocarditis [Not Recovered/Not Resolved]
  - Pericarditis [Not Recovered/Not Resolved]
  - Herpes simplex [Unknown]

NARRATIVE: CASE EVENT DATE: 20210119
